FAERS Safety Report 14980501 (Version 1)
Quarter: 2018Q2

REPORT INFORMATION
  Report Type: Spontaneous
  Country: US (occurrence: US)
  Receive Date: 20180606
  Receipt Date: 20180606
  Transmission Date: 20180711
  Serious: No
  Sender: FDA-Public Use
  Company Number: US-ACTELION-A-NJ2018-172600

PATIENT
  Age: 84 Year
  Sex: Male

DRUGS (1)
  1. VALCHLOR [Suspect]
     Active Substance: MECHLORETHAMINE
     Indication: MYCOSIS FUNGOIDES
     Dosage: UNK
     Route: 061
     Dates: start: 20180418, end: 201805

REACTIONS (5)
  - Mycosis fungoides recurrent [Unknown]
  - Application site pruritus [Unknown]
  - Therapy non-responder [Unknown]
  - Application site erythema [Unknown]
  - Application site irritation [Not Recovered/Not Resolved]
